FAERS Safety Report 14293211 (Version 2)
Quarter: 2018Q1

REPORT INFORMATION
  Report Type: Report from Study
  Country: US (occurrence: US)
  Receive Date: 20171215
  Receipt Date: 20180205
  Transmission Date: 20180509
  Serious: Yes (Hospitalization)
  Sender: FDA-Public Use
  Company Number: US-ACTELION-A-NJ2017-156095

PATIENT
  Age: 82 Year
  Sex: Female

DRUGS (22)
  1. RANITIDINE. [Concomitant]
     Active Substance: RANITIDINE
  2. IPRATROPIUM [Concomitant]
     Active Substance: IPRATROPIUM
     Dosage: 2.5 ML, TID
  3. ADVAIR HFA [Concomitant]
     Active Substance: FLUTICASONE PROPIONATE\SALMETEROL XINAFOATE
     Dosage: 250-50 MCG 1 PUFF BID
  4. METOPROLOL. [Concomitant]
     Active Substance: METOPROLOL
     Dosage: 12.5 MG, BID
  5. MELATONIN [Concomitant]
     Active Substance: MELATONIN
  6. MONTELUKAST [Concomitant]
     Active Substance: MONTELUKAST SODIUM
     Dosage: 10 MG, QD
  7. SPIRIVA [Concomitant]
     Active Substance: TIOTROPIUM BROMIDE MONOHYDRATE
  8. DULERA [Concomitant]
     Active Substance: FORMOTEROL FUMARATE DIHYDRATE\MOMETASONE FUROATE
  9. ACETAMINOPHEN. [Concomitant]
     Active Substance: ACETAMINOPHEN
  10. DOCUSATE SODIUM. [Concomitant]
     Active Substance: DOCUSATE SODIUM
  11. LOSARTAN. [Concomitant]
     Active Substance: LOSARTAN
     Dosage: 25 MG, QD
  12. OMEPRAZOLE. [Concomitant]
     Active Substance: OMEPRAZOLE
  13. LASIX [Concomitant]
     Active Substance: FUROSEMIDE
     Dosage: 20 MG, QD
  14. TRAZODONE [Concomitant]
     Active Substance: TRAZODONE HYDROCHLORIDE
     Dosage: 50 MG, QPM
  15. TRACLEER [Suspect]
     Active Substance: BOSENTAN
     Indication: PULMONARY ARTERIAL HYPERTENSION
     Dosage: 125 MG, BID
     Route: 048
     Dates: start: 20141218, end: 20171211
  16. ALBUTEROL. [Concomitant]
     Active Substance: ALBUTEROL
  17. PRAVASTATIN. [Concomitant]
     Active Substance: PRAVASTATIN
     Dosage: 40 MG, QD
  18. VITAMIN D3 [Concomitant]
     Active Substance: CHOLECALCIFEROL
  19. LIDOCAINE. [Concomitant]
     Active Substance: LIDOCAINE
     Dosage: 2 PATCH UP TO 12 HOURS DAILY
     Route: 061
  20. FOLIC ACID W/MINERALS NOS/VITAMINS NOS [Concomitant]
  21. PREDNISONE. [Concomitant]
     Active Substance: PREDNISONE
  22. FERROUS SULFATE. [Concomitant]
     Active Substance: FERROUS SULFATE

REACTIONS (12)
  - Asthma [Unknown]
  - Pneumonia [Unknown]
  - Haemoptysis [Unknown]
  - Therapeutic response decreased [Unknown]
  - Hypoxia [Unknown]
  - Sepsis [Recovered/Resolved]
  - Respiratory failure [Unknown]
  - Pulmonary hypertension [Unknown]
  - Pyrexia [Unknown]
  - Influenza [Recovered/Resolved]
  - Dyspnoea [Unknown]
  - Cough [Unknown]

NARRATIVE: CASE EVENT DATE: 20171202
